FAERS Safety Report 20367490 (Version 2)
Quarter: 2022Q3

REPORT INFORMATION
  Report Type: Other
  Country: CA (occurrence: None)
  Receive Date: 20220124
  Receipt Date: 20220818
  Transmission Date: 20221027
  Serious: Yes (Other)
  Sender: FDA-Public Use
  Company Number: CA-ROCHE-2083664

PATIENT
  Age: 50 Year
  Sex: Female

DRUGS (4)
  1. OCREVUS [Suspect]
     Active Substance: OCRELIZUMAB
     Indication: Relapsing-remitting multiple sclerosis
     Dosage: 300 MG IV DAY 0 AND DAY 14, 600 MG IV EVERY 6 MONTHS
     Route: 042
     Dates: start: 20180201
  2. DIPHENHYDRAMINE [Concomitant]
     Active Substance: DIPHENHYDRAMINE
     Indication: Premedication
     Dosage: 50 MG PO/IV 30-60 MINS PRIOR TO EACH INFUSION
     Dates: start: 20180215
  3. METHYLPREDNISOLONE [Concomitant]
     Active Substance: METHYLPREDNISOLONE
     Indication: Premedication
     Dosage: 100 MG IV 30 MINS PRIOR TO EACH INFUSION
     Route: 042
     Dates: start: 20180215
  4. ACETAMINOPHEN [Concomitant]
     Active Substance: ACETAMINOPHEN
     Indication: Premedication
     Dosage: 1000 MG PO 30-60 MIN PRIOR TO EACH INFUSION
     Route: 048
     Dates: start: 20180215

REACTIONS (8)
  - Balance disorder [Recovering/Resolving]
  - Aphasia [Recovering/Resolving]
  - Hypoaesthesia [Recovering/Resolving]
  - Human papilloma virus test positive [Not Recovered/Not Resolved]
  - Fatigue [Recovering/Resolving]
  - Asthenia [Recovering/Resolving]
  - Somnolence [Recovering/Resolving]
  - Smear cervix abnormal [Unknown]

NARRATIVE: CASE EVENT DATE: 20180217
